FAERS Safety Report 5310019-4 (Version None)
Quarter: 2007Q2

REPORT INFORMATION
  Report Type: 
  Country: None (occurrence: None)
  Receive Date: 20070427
  Receipt Date: 20070426
  Transmission Date: 20071010
  Serious: Yes (Hospitalization, Congenital Anomaly)
  Sender: FDA-Public Use
  Company Number: US-GLAXOSMITHKLINE-A0626407A

PATIENT
  Sex: Male
  Weight: 3.6 kg

DRUGS (5)
  1. PAXIL CR [Suspect]
     Indication: DRUG USE FOR UNKNOWN INDICATION
     Dates: start: 20040706
  2. ZOLOFT [Concomitant]
     Dosage: 50MG UNKNOWN
     Dates: start: 20050301
  3. TYLENOL [Concomitant]
  4. VALTREX [Concomitant]
  5. PRENATAL VITAMINS [Concomitant]

REACTIONS (18)
  - ATRIAL SEPTAL DEFECT [None]
  - BLOOD PRESSURE DECREASED [None]
  - CARDIAC MURMUR [None]
  - CONGENITAL AORTIC ANOMALY [None]
  - CONGENITAL AORTIC VALVE INCOMPETENCE [None]
  - CONGENITAL FOOT MALFORMATION [None]
  - DRUG EXPOSURE DURING PREGNANCY [None]
  - FINGER DEFORMITY [None]
  - FOETAL GROWTH RETARDATION [None]
  - HEART DISEASE CONGENITAL [None]
  - HYPERBILIRUBINAEMIA [None]
  - JAUNDICE NEONATAL [None]
  - LIMB MALFORMATION [None]
  - MACROSOMIA [None]
  - MARFAN'S SYNDROME [None]
  - OTITIS MEDIA [None]
  - PATENT DUCTUS ARTERIOSUS [None]
  - PERICARDIAL EFFUSION [None]
